FAERS Safety Report 9345893 (Version 2)
Quarter: 2013Q3

REPORT INFORMATION
  Report Type: Spontaneous
  Country: FR (occurrence: FR)
  Receive Date: 20130613
  Receipt Date: 20130801
  Transmission Date: 20140515
  Serious: Yes (Other)
  Sender: FDA-Public Use
  Company Number: FR-PFIZER INC-2013167841

PATIENT
  Age: 77 Year
  Sex: Male
  Weight: 68 kg

DRUGS (5)
  1. CRIZOTINIB [Suspect]
     Indication: LUNG NEOPLASM MALIGNANT
     Dosage: 250 MG, 2X/DAY
     Route: 048
     Dates: start: 20120605
  2. TAHOR [Concomitant]
     Indication: HYPERCHOLESTEROLAEMIA
     Dosage: 20 MG, IN 1 INTAKE
     Route: 048
  3. INEXIUM [Concomitant]
     Indication: HIATUS HERNIA
     Dosage: 20 MG, IN 1 INTAKE
     Route: 048
  4. PLAVIX [Concomitant]
     Dosage: 75 MG, IN 1 INTAKE
     Route: 048
  5. IXPRIM [Concomitant]
     Indication: PAIN
     Dosage: 2 DF, 3X/DAY
     Route: 048

REACTIONS (1)
  - Retinal detachment [Recovered/Resolved]
